FAERS Safety Report 15314180 (Version 1)
Quarter: 2018Q3

REPORT INFORMATION
  Report Type: Spontaneous
  Country: US (occurrence: US)
  Receive Date: 20180814
  Receipt Date: 20180814
  Transmission Date: 20181010
  Serious: No
  Sender: FDA-Public Use
  Company Number: None

PATIENT

DRUGS (1)
  1. METHOTREXATE  2.5 MG TAB [Suspect]
     Active Substance: METHOTREXATE
     Indication: PSORIATIC ARTHROPATHY
     Dates: start: 20180628, end: 20180810

REACTIONS (1)
  - Rash [None]

NARRATIVE: CASE EVENT DATE: 20180628
